FAERS Safety Report 11593464 (Version 1)
Quarter: 2015Q4

REPORT INFORMATION
  Report Type: Spontaneous
  Country: US (occurrence: US)
  Receive Date: 20151005
  Receipt Date: 20151005
  Transmission Date: 20160304
  Serious: Yes (Other)
  Sender: FDA-Public Use
  Company Number: US-GILEAD-2015-0174443

PATIENT
  Age: 54 Year
  Sex: Female

DRUGS (1)
  1. RANEXA [Suspect]
     Active Substance: RANOLAZINE
     Indication: ANGINA PECTORIS
     Dosage: UNK
     Route: 065
     Dates: end: 20150925

REACTIONS (6)
  - Feeling abnormal [Unknown]
  - Drug dose omission [Not Recovered/Not Resolved]
  - Rash [Unknown]
  - Chest pain [Not Recovered/Not Resolved]
  - Drug administration error [Unknown]
  - Gait disturbance [Not Recovered/Not Resolved]

NARRATIVE: CASE EVENT DATE: 201509
